FAERS Safety Report 4395221-0 (Version None)
Quarter: 2004Q3

REPORT INFORMATION
  Report Type: 
  Country: None (occurrence: None)
  Receive Date: 20040706
  Receipt Date: 20040625
  Transmission Date: 20050211
  Serious: Yes (Hospitalization)
  Sender: FDA-Public Use
  Company Number: 2004-06-1717

PATIENT
  Age: 15 Year
  Sex: Male
  Weight: 51 kg

DRUGS (4)
  1. NASONEX [Suspect]
     Indication: RHINITIS ALLERGIC
     Dosage: 50 MCG BID NASAL SPRAY
     Dates: start: 20040503, end: 20040508
  2. MINOCIN [Suspect]
     Indication: ACNE
     Dosage: 100 MG QD ORAL
     Route: 048
     Dates: start: 20040503, end: 20040508
  3. CROMOLYN SODIUM [Suspect]
     Indication: RHINITIS ALLERGIC
     Dosage: 6 QD INTRAOCULAR
     Route: 031
     Dates: start: 20040503, end: 20040508
  4. LEVOCETIRIZINE [Suspect]
     Indication: RHINITIS ALLERGIC
     Dosage: 5 MG QD ORAL
     Route: 048
     Dates: start: 20040503, end: 20040508

REACTIONS (5)
  - COUGH [None]
  - DRUG RASH WITH EOSINOPHILIA AND SYSTEMIC SYMPTOMS [None]
  - OEDEMA [None]
  - OXYGEN SATURATION DECREASED [None]
  - SKIN LESION [None]
